FAERS Safety Report 17261329 (Version 2)
Quarter: 2020Q1

REPORT INFORMATION
  Report Type: Spontaneous
  Country: PL (occurrence: PL)
  Receive Date: 20200113
  Receipt Date: 20200116
  Transmission Date: 20200409
  Serious: Yes (Hospitalization, Other)
  Sender: FDA-Public Use
  Company Number: PL-AMGEN-POLSP2020002507

PATIENT
  Age: 66 Year
  Sex: Male
  Weight: 91 kg

DRUGS (10)
  1. DEXAMETHASONE. [Suspect]
     Active Substance: DEXAMETHASONE
     Indication: PLASMA CELL MYELOMA
     Dosage: 40 MILLIGRAM, QWK
     Route: 065
     Dates: start: 20191009
  2. HEVIRAN [ACICLOVIR] [Concomitant]
     Dosage: UNK
  3. REVLIMID [Suspect]
     Active Substance: LENALIDOMIDE
     Indication: PLASMA CELL MYELOMA
     Dosage: 15 MILLIGRAM, QD
     Route: 065
     Dates: start: 20191009
  4. AMLOZEN [Concomitant]
     Dosage: UNK
  5. KYPROLIS [Suspect]
     Active Substance: CARFILZOMIB
     Indication: PLASMA CELL MYELOMA
     Dosage: 20 MILLIGRAM/SQ. METER (42 MG)
     Route: 042
     Dates: start: 20191009
  6. KYPROLIS [Suspect]
     Active Substance: CARFILZOMIB
     Dosage: 27 MILLIGRAM/SQ. METER (57 MG)
     Route: 042
  7. OMNIC OCAS [Concomitant]
     Active Substance: TAMSULOSIN HYDROCHLORIDE
     Dosage: UNK
  8. PROSCAR [Concomitant]
     Active Substance: FINASTERIDE
     Dosage: UNK
  9. PAMIFOS [Concomitant]
     Active Substance: PAMIDRONATE DISODIUM
     Dosage: UNK
  10. ACARD [Concomitant]
     Active Substance: ASPIRIN
     Dosage: UNK

REACTIONS (3)
  - Hepatitis B reactivation [Not Recovered/Not Resolved]
  - Pneumonia [Unknown]
  - Sepsis [Unknown]

NARRATIVE: CASE EVENT DATE: 2019
